FAERS Safety Report 6228839-0 (Version None)
Quarter: 2009Q2

REPORT INFORMATION
  Report Type: 
  Country: None (occurrence: None)
  Receive Date: 20090615
  Receipt Date: 20071113
  Transmission Date: 20091009
  Serious: Yes (Other)
  Sender: FDA-Public Use
  Company Number: US-ASTRAZENECA-2007UW18303

PATIENT
  Age: 38 Year
  Sex: Male
  Weight: 127 kg

DRUGS (27)
  1. SEROQUEL [Suspect]
     Indication: BIPOLAR DISORDER
     Route: 048
     Dates: start: 19980101, end: 19990101
  2. SEROQUEL [Suspect]
     Indication: DEPRESSION
     Route: 048
     Dates: start: 19980101, end: 19990101
  3. SEROQUEL [Suspect]
     Indication: SCHIZOPHRENIA
     Route: 048
     Dates: start: 19980101, end: 19990101
  4. SEROQUEL [Suspect]
     Dosage: 50 MG-1400 MG DAILY
     Route: 048
     Dates: start: 20000727
  5. SEROQUEL [Suspect]
     Dosage: 50 MG-1400 MG DAILY
     Route: 048
     Dates: start: 20000727
  6. SEROQUEL [Suspect]
     Dosage: 50 MG-1400 MG DAILY
     Route: 048
     Dates: start: 20000727
  7. ZYPREXA [Suspect]
     Indication: BIPOLAR DISORDER
     Dates: start: 19980101, end: 19990101
  8. ZYPREXA [Suspect]
     Indication: DEPRESSION
     Dates: start: 19980101, end: 19990101
  9. ZYPREXA [Suspect]
     Indication: SCHIZOPHRENIA
     Dates: start: 19980101, end: 19990101
  10. ZYPREXA [Suspect]
     Dosage: 5 MG-15 MG DAILY
     Dates: start: 19990317
  11. ZYPREXA [Suspect]
     Dosage: 5 MG-15 MG DAILY
     Dates: start: 19990317
  12. ZYPREXA [Suspect]
     Dosage: 5 MG-15 MG DAILY
     Dates: start: 19990317
  13. RISPERDAL [Suspect]
     Indication: BIPOLAR DISORDER
     Dates: start: 20000101, end: 20010101
  14. RISPERDAL [Suspect]
     Indication: DEPRESSION
     Dates: start: 20000101, end: 20010101
  15. RISPERDAL [Suspect]
     Indication: SCHIZOPHRENIA
     Dates: start: 20000101, end: 20010101
  16. RISPERDAL [Suspect]
     Dosage: 2 MG-6 MG DAILY
     Dates: start: 19960206
  17. RISPERDAL [Suspect]
     Dosage: 2 MG-6 MG DAILY
     Dates: start: 19960206
  18. RISPERDAL [Suspect]
     Dosage: 2 MG-6 MG DAILY
     Dates: start: 19960206
  19. LITHIUM CARBONATE [Concomitant]
     Indication: AFFECTIVE DISORDER
     Dosage: 300 MG-1800 MG DAILY
     Dates: start: 20011201
  20. DEPAKOTE [Concomitant]
     Dosage: 500 MG-2500 MG
     Dates: start: 19960206
  21. XANAX [Concomitant]
     Dosage: 1.5 MG-3 MG
     Dates: start: 19960206
  22. WELLBUTRIN [Concomitant]
     Indication: DEPRESSION
     Dosage: 100 MG-400 MG DAILY
     Dates: start: 19960206
  23. LEXAPRO [Concomitant]
     Dates: start: 20030813
  24. NEURONTIN [Concomitant]
     Indication: ANXIETY
     Dosage: 300 MG-4400 MG
     Dates: start: 20031201
  25. ABILIFY [Concomitant]
     Indication: PSYCHOTIC DISORDER
     Dates: start: 20040408
  26. REMERON [Concomitant]
     Indication: INSOMNIA
     Dosage: 15 MG-45 MG DAILY
     Dates: start: 19960206
  27. IBUPROFEN [Concomitant]
     Dosage: 300 MG-6000 MG DAILY

REACTIONS (2)
  - NEUROPATHY PERIPHERAL [None]
  - TYPE 2 DIABETES MELLITUS [None]
